FAERS Safety Report 5489768-3 (Version None)
Quarter: 2007Q4

REPORT INFORMATION
  Report Type: 
  Country: None (occurrence: None)
  Receive Date: 20071017
  Receipt Date: 20071017
  Transmission Date: 20080405
  Serious: Yes (Hospitalization)
  Sender: FDA-Public Use
  Company Number: None

PATIENT
  Sex: Female
  Weight: 73.4827 kg

DRUGS (3)
  1. THALIDOMIDE [Suspect]
     Dosage: 100MG PO
     Dates: end: 20070831
  2. XELODA [Suspect]
     Dosage: 2000MG PO
     Route: 048
     Dates: start: 20070907
  3. TEMODAR [Suspect]
     Dosage: 100MG PO
     Route: 048
     Dates: start: 20070907

REACTIONS (3)
  - ASTHENIA [None]
  - HAEMOGLOBIN DECREASED [None]
  - VOMITING [None]
